FAERS Safety Report 6202747-3 (Version None)
Quarter: 2009Q2

REPORT INFORMATION
  Report Type: 
  Country: None (occurrence: None)
  Receive Date: 20090526
  Receipt Date: 20090518
  Transmission Date: 20091009
  Serious: Yes (Other)
  Sender: FDA-Public Use
  Company Number: PHEH2009US05007

PATIENT
  Sex: Male
  Weight: 90.703 kg

DRUGS (2)
  1. ZOMETA [Suspect]
     Indication: MULTIPLE MYELOMA
     Dosage: 4MG MONTHY
     Route: 042
     Dates: start: 20070919, end: 20080725
  2. ZOMETA [Suspect]
     Indication: BONE LESION

REACTIONS (3)
  - BONE FRAGMENTATION [None]
  - OSTEONECROSIS [None]
  - PAIN IN JAW [None]
